FAERS Safety Report 16837847 (Version 1)
Quarter: 2019Q3

REPORT INFORMATION
  Report Type: Spontaneous
  Country: DE (occurrence: DE)
  Receive Date: 20190923
  Receipt Date: 20190923
  Transmission Date: 20191005
  Serious: Yes (Other)
  Sender: FDA-Public Use
  Company Number: DE-TEVA-2019-DE-1111096

PATIENT
  Age: 1 Day
  Sex: Female
  Weight: 2.18 kg

DRUGS (2)
  1. FOLIO FORTE (NEM) [Concomitant]
     Indication: PROPHYLAXIS OF NEURAL TUBE DEFECT
     Dosage: 0.8 [MG/D (BIS 0.4) ]
     Route: 064
     Dates: start: 20180318, end: 20181207
  2. NEBIVOLOL. [Suspect]
     Active Substance: NEBIVOLOL
     Indication: HYPERTENSION
     Dosage: 5 [MG/D ]
     Route: 064
     Dates: start: 20180318, end: 20181207

REACTIONS (4)
  - Thrombocytopenia neonatal [Unknown]
  - Small for dates baby [Recovering/Resolving]
  - Hypotonia neonatal [Recovered/Resolved]
  - Foetal exposure during pregnancy [Unknown]

NARRATIVE: CASE EVENT DATE: 20181207
